FAERS Safety Report 10366356 (Version 1)
Quarter: 2014Q3

REPORT INFORMATION
  Report Type: Spontaneous
  Country: NL (occurrence: NL)
  Receive Date: 20140806
  Receipt Date: 20140806
  Transmission Date: 20150326
  Serious: Yes (Hospitalization)
  Sender: FDA-Public Use
  Company Number: NL-ASTRAZENECA-2014SE56703

PATIENT
  Age: 29 Year
  Sex: Female
  Weight: 64 kg

DRUGS (1)
  1. QUETIAPINE [Suspect]
     Active Substance: QUETIAPINE
     Indication: SCHIZOPHRENIA
     Route: 048

REACTIONS (3)
  - Exposure during pregnancy [Unknown]
  - Pre-eclampsia [Unknown]
  - Placental insufficiency [Unknown]
